FAERS Safety Report 17274973 (Version 8)
Quarter: 2021Q1

REPORT INFORMATION
  Report Type: Other
  Country: CN (occurrence: CN)
  Receive Date: 20200116
  Receipt Date: 20210115
  Transmission Date: 20210419
  Serious: Yes (Hospitalization, Other)
  Sender: FDA-Public Use
  Company Number: CN-ROCHE-2512827

PATIENT
  Age: 78 Year
  Sex: Female

DRUGS (17)
  1. RANIBIZUMAB. [Suspect]
     Active Substance: RANIBIZUMAB
     Indication: NEOVASCULAR AGE-RELATED MACULAR DEGENERATION
     Route: 065
     Dates: start: 20191128, end: 20200227
  2. CALCITRIOL. [Concomitant]
     Active Substance: CALCITRIOL
  3. METFORMIN [Concomitant]
     Active Substance: METFORMIN HYDROCHLORIDE
  4. MULTI B [Concomitant]
  5. PANTOPRAZOLE [Concomitant]
     Active Substance: PANTOPRAZOLE
  6. BIFIDOBACTERIUM ANIMALIS [Concomitant]
     Active Substance: BIFIDOBACTERIUM ANIMALIS LACTIS
  7. GLICLAZIDE [Concomitant]
     Active Substance: GLICLAZIDE
  8. PREGABALIN. [Concomitant]
     Active Substance: PREGABALIN
  9. RANIBIZUMAB. [Suspect]
     Active Substance: RANIBIZUMAB
     Route: 065
  10. PROTAMINE ZINC INSULIN INJECTION [Concomitant]
  11. AMLODIPINE [Concomitant]
     Active Substance: AMLODIPINE BESYLATE
  12. FU FANG DAN SHEN PIAN [Concomitant]
  13. SITAGLIPTIN PHOSPHATE [Concomitant]
     Active Substance: SITAGLIPTIN PHOSPHATE
  14. NITRENDIPINE [Concomitant]
     Active Substance: NITRENDIPINE
  15. MECOBALAMIN [Concomitant]
     Active Substance: METHYLCOBALAMIN
  16. CLOPIDOGREL HYDROGEN SULFATE [Concomitant]
     Active Substance: CLOPIDOGREL BISULFATE
  17. METHYLCOBALAMIN. [Concomitant]
     Active Substance: METHYLCOBALAMIN

REACTIONS (6)
  - Cerebral infarction [Recovering/Resolving]
  - Conjunctival haemorrhage [Recovered/Resolved]
  - Muscular weakness [Recovering/Resolving]
  - Retinal haemorrhage [Not Recovered/Not Resolved]
  - Detachment of retinal pigment epithelium [Not Recovered/Not Resolved]
  - Intracranial mass [Recovering/Resolving]

NARRATIVE: CASE EVENT DATE: 20191129
